FAERS Safety Report 8432364-6 (Version None)
Quarter: 2012Q2

REPORT INFORMATION
  Report Type: 
  Country: None (occurrence: None)
  Receive Date: 20120613
  Receipt Date: 20120605
  Transmission Date: 20120825
  Serious: Yes (Death, Hospitalization)
  Sender: FDA-Public Use
  Company Number: US-ELI_LILLY_AND_COMPANY-US201201000436

PATIENT
  Sex: Male
  Weight: 64.399 kg

DRUGS (4)
  1. PREDNISONE TAB [Concomitant]
  2. FORTEO [Suspect]
     Dosage: UNK, UNKNOWN
     Route: 065
  3. FORTEO [Suspect]
     Indication: OSTEOPOROSIS
     Dosage: 20 UG, QD
     Route: 058
     Dates: start: 20111218
  4. REMICADE [Concomitant]

REACTIONS (5)
  - HOSPITALISATION [None]
  - MUSCULAR WEAKNESS [None]
  - POLYMYALGIA RHEUMATICA [None]
  - MALAISE [None]
  - RENAL CANCER METASTATIC [None]
